FAERS Safety Report 24161342 (Version 1)
Quarter: 2024Q3

REPORT INFORMATION
  Report Type: Spontaneous
  Country: JP (occurrence: JP)
  Receive Date: 20240801
  Receipt Date: 20240801
  Transmission Date: 20241016
  Serious: Yes (Other)
  Sender: RANBAXY
  Company Number: JP-SUN PHARMACEUTICAL INDUSTRIES LTD-2024R1-459559

PATIENT
  Age: 38 Year
  Sex: Male

DRUGS (2)
  1. CLOZAPINE [Suspect]
     Active Substance: CLOZAPINE
     Indication: Schizophrenia
     Dosage: 250 MILLIGRAM, DAILY
     Route: 065
  2. CLOZAPINE [Suspect]
     Active Substance: CLOZAPINE
     Dosage: SLIGHTLY REDUCED
     Route: 065

REACTIONS (6)
  - Disease recurrence [Unknown]
  - Condition aggravated [Unknown]
  - Salivary hypersecretion [Recovered/Resolved]
  - Somnolence [Recovered/Resolved]
  - Hepatic enzyme increased [Recovered/Resolved]
  - C-reactive protein increased [Recovered/Resolved]
